FAERS Safety Report 9321007 (Version 4)
Quarter: 2013Q3

REPORT INFORMATION
  Report Type: Spontaneous
  Country: US (occurrence: US)
  Receive Date: 20130531
  Receipt Date: 20130809
  Transmission Date: 20140515
  Serious: No
  Sender: FDA-Public Use
  Company Number: US-PFIZER INC-2013163314

PATIENT
  Sex: Female

DRUGS (2)
  1. PROTONIX [Suspect]
     Dosage: UNK
  2. EFFEXOR XR [Suspect]
     Dosage: 75 MG, DAILY
     Route: 048

REACTIONS (3)
  - Depression [Unknown]
  - Anxiety [Unknown]
  - Abdominal pain upper [Unknown]
